FAERS Safety Report 13515895 (Version 2)
Quarter: 2017Q2

REPORT INFORMATION
  Report Type: Spontaneous
  Country: US (occurrence: US)
  Receive Date: 20170505
  Receipt Date: 20170518
  Transmission Date: 20170830
  Serious: Yes (Hospitalization)
  Sender: FDA-Public Use
  Company Number: US-BIOGEN-2017BI00396916

PATIENT
  Age: 0 Day
  Sex: Male

DRUGS (4)
  1. LABETOLOL [Concomitant]
     Active Substance: LABETALOL HYDROCHLORIDE
     Indication: MATERNAL EXPOSURE TIMING UNSPECIFIED
     Route: 064
  2. TYSABRI [Suspect]
     Active Substance: NATALIZUMAB
     Indication: MATERNAL EXPOSURE TIMING UNSPECIFIED
     Dosage: INFUSED OVER ONE HOUR
     Route: 064
     Dates: start: 20150925, end: 20160615
  3. TYSABRI [Suspect]
     Active Substance: NATALIZUMAB
     Route: 064
     Dates: end: 20160615
  4. SERTRALINE [Concomitant]
     Active Substance: SERTRALINE HYDROCHLORIDE
     Indication: MATERNAL EXPOSURE TIMING UNSPECIFIED
     Route: 064

REACTIONS (2)
  - Foetal exposure during pregnancy [Recovered/Resolved]
  - Pulmonary oedema neonatal [Recovered/Resolved]

NARRATIVE: CASE EVENT DATE: 20170306
